FAERS Safety Report 6065111-6 (Version None)
Quarter: 2009Q1

REPORT INFORMATION
  Report Type: 
  Country: None (occurrence: None)
  Receive Date: 20090204
  Receipt Date: 20090129
  Transmission Date: 20090719
  Serious: Yes (Life-Threatening, Hospitalization)
  Sender: FDA-Public Use
  Company Number: US-BRISTOL-MYERS SQUIBB COMPANY-11894946

PATIENT
  Age: 55 Year
  Sex: Male

DRUGS (7)
  1. ARIPIPRAZOLE [Suspect]
     Indication: PSYCHOTIC DISORDER
     Dosage: DOUBLE BLIND STUDY THERAPY FROM 21 JAN 98 TO 17 FEB 98.
     Route: 048
     Dates: start: 19980218, end: 19980220
  2. ARIPIPRAZOLE [Suspect]
     Indication: SCHIZOPHRENIA
     Dosage: DOUBLE BLIND STUDY THERAPY FROM 21 JAN 98 TO 17 FEB 98.
     Route: 048
     Dates: start: 19980218, end: 19980220
  3. WELLBUTRIN [Suspect]
     Indication: DEPRESSION
     Dosage: 01 NOV 97 TO 15 JAN 98 AND 20 FEB 98 TO 20 FEB 98
     Route: 048
     Dates: start: 19980220, end: 19980220
  4. WELLBUTRIN [Suspect]
     Indication: NICOTINE DEPENDENCE
     Dosage: 01 NOV 97 TO 15 JAN 98 AND 20 FEB 98 TO 20 FEB 98
     Route: 048
     Dates: start: 19980220, end: 19980220
  5. PRILOSEC [Concomitant]
     Dates: start: 19980218
  6. LORAZEPAM [Concomitant]
     Dates: start: 19980209
  7. ASCORBIC ACID [Concomitant]
     Dates: start: 19980218, end: 19980219

REACTIONS (3)
  - DISORIENTATION [None]
  - GRAND MAL CONVULSION [None]
  - RHABDOMYOLYSIS [None]
